FAERS Safety Report 9192619 (Version 1)
Quarter: 2013Q1

REPORT INFORMATION
  Report Type: Spontaneous
  Country: US (occurrence: None)
  Receive Date: 20120703
  Receipt Date: 20120703
  Transmission Date: 20140127
  Serious: No
  Sender: FDA-Public Use
  Company Number: PHEH2012US009160

PATIENT
  Age: 42 Year
  Sex: Male

DRUGS (1)
  1. GILENYA (FTY)CAPSULE [Suspect]

REACTIONS (1)
  - Nasopharyngitis [None]
